FAERS Safety Report 18513749 (Version 1)
Quarter: 2020Q4

REPORT INFORMATION
  Report Type: Other
  Country: CA (occurrence: CA)
  Receive Date: 20201118
  Receipt Date: 20201118
  Transmission Date: 20210114
  Serious: Yes (Other)
  Sender: FDA-Public Use
  Company Number: CA-CELLTRION INC.-2020CA031385

PATIENT

DRUGS (21)
  1. CLINDAMYCIN. [Concomitant]
     Active Substance: CLINDAMYCIN
  2. RITUXIMAB (UNKNOWN) [Suspect]
     Active Substance: RITUXIMAB
     Indication: PEMPHIGUS
     Dosage: UNK
     Route: 042
  3. RITUXIMAB (UNKNOWN) [Suspect]
     Active Substance: RITUXIMAB
     Indication: PEMPHIGOID
     Dosage: 1000.0 MILLIGRAM, CYCLIC
     Route: 042
  4. RITUXIMAB (UNKNOWN) [Suspect]
     Active Substance: RITUXIMAB
     Dosage: UNK
     Route: 065
  5. MORPHINE [Concomitant]
     Active Substance: MORPHINE
  6. MYCOPHENOLATE [Concomitant]
     Active Substance: MYCOPHENOLIC ACID
  7. PREDNISONE. [Concomitant]
     Active Substance: PREDNISONE
  8. DIPHENHYDRAMINE HYDROCHLORIDE. [Concomitant]
     Active Substance: DIPHENHYDRAMINE HYDROCHLORIDE
     Indication: PREMEDICATION
     Dosage: 25.0 MILLIGRAM, 2 EVERY 1 DAYS
     Route: 042
  9. METHYLPREDNISOLONE. [Concomitant]
     Active Substance: METHYLPREDNISOLONE
  10. METHOTREXATE. [Suspect]
     Active Substance: METHOTREXATE
     Indication: PRODUCT USED FOR UNKNOWN INDICATION
     Route: 048
  11. ACETAMINOPHEN. [Concomitant]
     Active Substance: ACETAMINOPHEN
     Indication: PREMEDICATION
     Dosage: 650.0 MILLIGRAM
     Route: 048
  12. AZATHIOPRINE. [Concomitant]
     Active Substance: AZATHIOPRINE
  13. NYSTATIN. [Concomitant]
     Active Substance: NYSTATIN
  14. DEMEROL [Concomitant]
     Active Substance: MEPERIDINE HYDROCHLORIDE
  15. FLUCONAZOLE. [Concomitant]
     Active Substance: FLUCONAZOLE
  16. LORAZEPAM. [Concomitant]
     Active Substance: LORAZEPAM
  17. RITUXIMAB (UNKNOWN) [Suspect]
     Active Substance: RITUXIMAB
     Dosage: UNK
     Route: 065
  18. GABAPENTIN. [Concomitant]
     Active Substance: GABAPENTIN
  19. LIDOCAINE. [Concomitant]
     Active Substance: LIDOCAINE
  20. STATEX [Concomitant]
  21. ACYCLOVIR [ACICLOVIR] [Concomitant]
     Active Substance: ACYCLOVIR

REACTIONS (23)
  - Arthritis [Not Recovered/Not Resolved]
  - Circumstance or information capable of leading to device use error [Not Recovered/Not Resolved]
  - Aphthous ulcer [Not Recovered/Not Resolved]
  - Lung abscess [Not Recovered/Not Resolved]
  - Urticaria [Not Recovered/Not Resolved]
  - Body temperature increased [Not Recovered/Not Resolved]
  - Oral mucosal blistering [Not Recovered/Not Resolved]
  - Pruritus [Not Recovered/Not Resolved]
  - Aphonia [Not Recovered/Not Resolved]
  - Blood pressure fluctuation [Not Recovered/Not Resolved]
  - Tongue disorder [Not Recovered/Not Resolved]
  - Infusion related reaction [Not Recovered/Not Resolved]
  - Pain [Not Recovered/Not Resolved]
  - Off label use [Not Recovered/Not Resolved]
  - Product use in unapproved indication [Not Recovered/Not Resolved]
  - Blood pressure increased [Not Recovered/Not Resolved]
  - Rash [Not Recovered/Not Resolved]
  - Sepsis [Not Recovered/Not Resolved]
  - Pemphigus [Not Recovered/Not Resolved]
  - Fatigue [Not Recovered/Not Resolved]
  - Influenza [Not Recovered/Not Resolved]
  - Nausea [Not Recovered/Not Resolved]
  - Anxiety [Not Recovered/Not Resolved]
